FAERS Safety Report 18227559 (Version 6)
Quarter: 2021Q2

REPORT INFORMATION
  Report Type: Spontaneous
  Country: US (occurrence: US)
  Receive Date: 20200903
  Receipt Date: 20210617
  Transmission Date: 20210717
  Serious: No
  Sender: FDA-Public Use
  Company Number: US-GLAXOSMITHKLINE-US2020AMR175865

PATIENT
  Sex: Female

DRUGS (2)
  1. ZEJULA [Suspect]
     Active Substance: NIRAPARIB
     Indication: OVARIAN CANCER
     Dosage: 200 MG, QD
     Route: 048
     Dates: start: 20200824
  2. ZEJULA [Suspect]
     Active Substance: NIRAPARIB
     Dosage: 200 MG, QD

REACTIONS (10)
  - Pollakiuria [Unknown]
  - Insomnia [Unknown]
  - Asthenia [Unknown]
  - Renal pain [Unknown]
  - Diarrhoea [Unknown]
  - Fatigue [Unknown]
  - Sleep disorder [Not Recovered/Not Resolved]
  - Chest pain [Unknown]
  - Blood test abnormal [Unknown]
  - Product dose omission in error [Unknown]
